FAERS Safety Report 8958834 (Version 2)
Quarter: 2013Q1

REPORT INFORMATION
  Report Type: Spontaneous
  Country: GB (occurrence: GB)
  Receive Date: 20121212
  Receipt Date: 20130208
  Transmission Date: 20140127
  Serious: Yes (Death, Life-Threatening, Hospitalization, Other)
  Sender: FDA-Public Use
  Company Number: GB-ABBOTT-12P-167-1019160-00

PATIENT
  Age: 64 Year
  Sex: Female
  Weight: 64.8 kg

DRUGS (2)
  1. HUMIRA [Suspect]
     Indication: RHEUMATOID ARTHRITIS
     Dates: start: 200901, end: 200906
  2. ETANERCEPT [Suspect]
     Indication: RHEUMATOID ARTHRITIS
     Route: 058
     Dates: start: 200907, end: 201112

REACTIONS (4)
  - Graft versus host disease [Fatal]
  - Acute myeloid leukaemia [Fatal]
  - Drug ineffective [Unknown]
  - Pulmonary fibrosis [Fatal]
